FAERS Safety Report 5335375-2 (Version None)
Quarter: 2007Q2

REPORT INFORMATION
  Report Type: 
  Country: None (occurrence: None)
  Receive Date: 20070525
  Receipt Date: 20070515
  Transmission Date: 20071010
  Serious: Yes (Other)
  Sender: FDA-Public Use
  Company Number: US-PFIZER INC-2007039904

PATIENT
  Sex: Female

DRUGS (7)
  1. CHANTIX [Suspect]
     Dates: start: 20070421, end: 20070501
  2. GEMFIBROZIL [Concomitant]
  3. SERTRALINE [Concomitant]
  4. CLOPIDOGREL [Concomitant]
  5. WARFARIN SODIUM [Concomitant]
  6. FUROSEMIDE [Concomitant]
  7. ROSUVASTATIN [Concomitant]

REACTIONS (6)
  - CHROMATURIA [None]
  - DYSPNOEA [None]
  - GAIT DISTURBANCE [None]
  - MUSCLE SPASMS [None]
  - OEDEMA PERIPHERAL [None]
  - RASH [None]
